FAERS Safety Report 15312015 (Version 1)
Quarter: 2018Q3

REPORT INFORMATION
  Report Type: Spontaneous
  Country: US (occurrence: US)
  Receive Date: 20180823
  Receipt Date: 20180823
  Transmission Date: 20181010
  Serious: Yes (Hospitalization)
  Sender: FDA-Public Use
  Company Number: US-ASTRAZENECA-2018SF04379

PATIENT
  Age: 67 Year
  Sex: Male
  Weight: 95.3 kg

DRUGS (3)
  1. BRILINTA [Suspect]
     Active Substance: TICAGRELOR
     Indication: MYOCARDIAL INFARCTION
     Route: 048
     Dates: start: 20180811, end: 20180813
  2. TOPROL XL [Suspect]
     Active Substance: METOPROLOL SUCCINATE
     Indication: HYPERTENSION
     Route: 048
     Dates: start: 201808
  3. TOPROL XL [Suspect]
     Active Substance: METOPROLOL SUCCINATE
     Indication: HYPERTENSION
     Route: 048
     Dates: start: 201808

REACTIONS (8)
  - Vascular occlusion [Not Recovered/Not Resolved]
  - Visual impairment [Unknown]
  - Blood pressure increased [Unknown]
  - Respiration abnormal [Unknown]
  - Respiratory rate increased [Recovered/Resolved]
  - Hyperventilation [Recovered/Resolved]
  - Myocardial infarction [Unknown]
  - Sleep disorder [Recovered/Resolved]

NARRATIVE: CASE EVENT DATE: 20180811
